FAERS Safety Report 7979923-2 (Version None)
Quarter: 2011Q4

REPORT INFORMATION
  Report Type: 
  Country: None (occurrence: None)
  Receive Date: 20111208
  Receipt Date: 20111129
  Transmission Date: 20120403
  Serious: Yes (Disabling, Other)
  Sender: FDA-Public Use
  Company Number: 2011SP051467

PATIENT
  Age: 20 Year
  Sex: Female
  Weight: 55 kg

DRUGS (2)
  1. NUVARING [Suspect]
     Indication: CONTRACEPTION
     Dosage: 15 MCG/120 MCG/24 HOURES, SYSTEME DE DIFFUSION VAGINAL (NUVARING /01603301/)
     Dates: start: 20071101, end: 20080301
  2. NUVARING [Suspect]
     Indication: CONTRACEPTION
     Dosage: 15 MCG/120 MCG/24 HOURES, SYSTEME DE DIFFUSION VAGINAL (NUVARING /01603301/)
     Dates: start: 20100801, end: 20111023

REACTIONS (5)
  - MOOD SWINGS [None]
  - DYSTONIA [None]
  - DEPRESSION [None]
  - ECZEMA [None]
  - MIGRAINE WITH AURA [None]
